FAERS Safety Report 6820035-9 (Version None)
Quarter: 2010Q3

REPORT INFORMATION
  Report Type: 
  Country: None (occurrence: None)
  Receive Date: 20100707
  Receipt Date: 20100621
  Transmission Date: 20110219
  Serious: Yes (Hospitalization)
  Sender: FDA-Public Use
  Company Number: A0796501A

PATIENT
  Age: 57 Year
  Sex: Female
  Weight: 99.5 kg

DRUGS (2)
  1. AVANDIA [Suspect]
     Dosage: 4MG TWICE PER DAY
     Route: 048
     Dates: start: 20030108, end: 20090201
  2. AVANDAMET [Suspect]
     Route: 048

REACTIONS (4)
  - ATRIAL FIBRILLATION [None]
  - CARDIAC FAILURE CONGESTIVE [None]
  - DIASTOLIC DYSFUNCTION [None]
  - SICK SINUS SYNDROME [None]
